FAERS Safety Report 6702058-3 (Version None)
Quarter: 2010Q2

REPORT INFORMATION
  Report Type: 
  Country: None (occurrence: None)
  Receive Date: 20100429
  Receipt Date: 20100416
  Transmission Date: 20101027
  Serious: Yes (Hospitalization)
  Sender: FDA-Public Use
  Company Number: SE-CELGENEUS-150-C5013-10041300

PATIENT
  Sex: Female
  Weight: 72 kg

DRUGS (10)
  1. CC-5013 [Suspect]
     Indication: MULTIPLE MYELOMA
     Route: 048
     Dates: start: 20100322, end: 20100413
  2. CC-5013 [Suspect]
     Route: 048
     Dates: start: 20091102
  3. DEXAMETHASONE [Suspect]
     Indication: MULTIPLE MYELOMA
     Route: 065
     Dates: start: 20100322, end: 20100413
  4. DEXAMETHASONE [Suspect]
     Route: 065
     Dates: start: 20091102
  5. TROMBYL [Concomitant]
     Indication: THROMBOSIS PROPHYLAXIS
     Route: 048
     Dates: start: 20091102, end: 20100416
  6. NORVASC [Concomitant]
     Indication: HYPERTENSION
     Route: 048
     Dates: start: 19980101
  7. ENALAPRIL MALEATE [Concomitant]
     Indication: HYPERTENSION
     Route: 048
     Dates: start: 19980101
  8. SELOKEN ZOC [Concomitant]
     Indication: HYPERTENSION
     Route: 048
     Dates: start: 19980101
  9. SIMVASTATIN [Concomitant]
     Indication: HYPERLIPIDAEMIA
     Route: 048
     Dates: start: 19980101
  10. SODIUM CHLORIDE [Concomitant]
     Indication: HYPONATRAEMIA
     Route: 048
     Dates: start: 20091006

REACTIONS (4)
  - LEUKOPENIA [None]
  - PNEUMONIA [None]
  - SUBDURAL HAEMATOMA [None]
  - THROMBOCYTOPENIA [None]
